FAERS Safety Report 5511026-9 (Version None)
Quarter: 2007Q4

REPORT INFORMATION
  Report Type: 
  Country: None (occurrence: None)
  Receive Date: 20071109
  Receipt Date: 20071029
  Transmission Date: 20080405
  Serious: Yes (Disabling)
  Sender: FDA-Public Use
  Company Number: DE-JNJFOC-20071007022

PATIENT
  Age: 53 Year
  Sex: Male

DRUGS (5)
  1. TAVANIC [Suspect]
     Route: 048
  2. TAVANIC [Suspect]
     Indication: PROSTATITIS
     Route: 048
  3. OMNIC [Concomitant]
     Indication: MICTURITION DISORDER
     Route: 048
  4. LYRICA [Concomitant]
     Indication: MYELOPATHY
     Route: 048
  5. MIRTAZAPINE [Concomitant]
     Indication: MYELOPATHY
     Route: 048

REACTIONS (3)
  - EPICONDYLITIS [None]
  - MYALGIA [None]
  - TENDON PAIN [None]
